FAERS Safety Report 11445182 (Version 1)
Quarter: 2015Q3

REPORT INFORMATION
  Report Type: Spontaneous
  Country: None (occurrence: None)
  Receive Date: 20150901
  Receipt Date: 20150901
  Transmission Date: 20151125
  Serious: Yes (Other)
  Sender: FDA-Public Use
  Company Number: None

PATIENT
  Age: 64 Year
  Sex: Male
  Weight: 106.6 kg

DRUGS (11)
  1. LOSARTAN POTASSIUM. [Concomitant]
     Active Substance: LOSARTAN POTASSIUM
  2. ASPIRIN. [Concomitant]
     Active Substance: ASPIRIN
  3. ALBUTEROL SULFATE. [Concomitant]
     Active Substance: ALBUTEROL SULFATE
  4. NEXXIUM [Concomitant]
  5. POTASSIUM CHLORIDE CYS [Concomitant]
  6. SPIRONOLACTON [Concomitant]
     Active Substance: SPIRONOLACTONE
  7. ADVAIR DISKUS [Suspect]
     Active Substance: FLUTICASONE PROPIONATE\SALMETEROL XINAFOATE
  8. IBUPROFEN. [Concomitant]
     Active Substance: IBUPROFEN
  9. FISH OIL [Concomitant]
     Active Substance: FISH OIL
  10. MULTI VITAMIN [Concomitant]
     Active Substance: VITAMINS
  11. SIMVASTATIN. [Concomitant]
     Active Substance: SIMVASTATIN

REACTIONS (2)
  - Device breakage [None]
  - Device failure [None]

NARRATIVE: CASE EVENT DATE: 20150831
